FAERS Safety Report 23403152 (Version 2)
Quarter: 2025Q3

REPORT INFORMATION
  Report Type: Spontaneous
  Country: CA (occurrence: CA)
  Receive Date: 20240116
  Receipt Date: 20250716
  Transmission Date: 20251021
  Serious: Yes (Hospitalization, Other)
  Sender: DR REDDYS
  Company Number: CA-DRL-USA-SPO/CAN/24/0000594

PATIENT
  Age: 66 Year
  Sex: Male

DRUGS (1)
  1. LENALIDOMIDE [Suspect]
     Active Substance: LENALIDOMIDE
     Indication: Product used for unknown indication

REACTIONS (4)
  - Encephalitis viral [Unknown]
  - Herpes zoster [Unknown]
  - Atrial fibrillation [Unknown]
  - COVID-19 [Unknown]
